FAERS Safety Report 8150874-6 (Version None)
Quarter: 2012Q1

REPORT INFORMATION
  Report Type: 
  Country: None (occurrence: None)
  Receive Date: 20120220
  Receipt Date: 20120217
  Transmission Date: 20120608
  Serious: Yes (Other)
  Sender: FDA-Public Use
  Company Number: PHHY2011US54072

PATIENT
  Sex: Male

DRUGS (7)
  1. FOLIC ACID [Concomitant]
     Indication: SICKLE CELL ANAEMIA
     Dosage: 1 MG DAILY
  2. PENICILLIN [Concomitant]
     Indication: PROPHYLAXIS
     Dosage: 260 MG, BID
     Route: 048
  3. EXJADE [Suspect]
     Indication: IRON OVERLOAD
     Dosage: 375 MG, QD
     Route: 048
     Dates: start: 20110101, end: 20110401
  4. EXJADE [Suspect]
     Dosage: 250 MG, QD
     Route: 048
     Dates: start: 20110501, end: 20110601
  5. ACETAMINOPHEN [Concomitant]
  6. NSAID'S [Concomitant]
  7. MIRALAX [Concomitant]
     Indication: CONSTIPATION
     Dosage: 170 MG, PRN
     Route: 048
     Dates: start: 20110415

REACTIONS (4)
  - HEPATIC ENZYME INCREASED [None]
  - TRANSAMINASES INCREASED [None]
  - ASPARTATE AMINOTRANSFERASE INCREASED [None]
  - ALANINE AMINOTRANSFERASE INCREASED [None]
